FAERS Safety Report 9444927 (Version 2)
Quarter: 2013Q3

REPORT INFORMATION
  Report Type: Spontaneous
  Country: FR (occurrence: FR)
  Receive Date: 20130807
  Receipt Date: 20130813
  Transmission Date: 20140515
  Serious: Yes (Hospitalization, Other)
  Sender: FDA-Public Use
  Company Number: FR-RANBAXY-2013RR-71753

PATIENT
  Age: 30 Year
  Sex: Female

DRUGS (1)
  1. IBUPROFEN [Suspect]
     Indication: BACK PAIN
     Dosage: MORE THAN 20 TABLETS OF 400 MG EACH (REPRESENTING 152 MG/KG)
     Route: 048

REACTIONS (5)
  - Inappropriate antidiuretic hormone secretion [Unknown]
  - Convulsion [Recovered/Resolved]
  - Hyponatraemia [Recovered/Resolved]
  - Renal failure acute [Unknown]
  - Overdose [Unknown]
